FAERS Safety Report 8822251 (Version 1)
Quarter: 2012Q4

REPORT INFORMATION
  Report Type: 
  Country: US (occurrence: US)
  Receive Date: 20121003
  Receipt Date: 20121003
  Transmission Date: 20130627
  Serious: No
  Sender: FDA-Public Use
  Company Number: US-PFIZER INC-2012243488

PATIENT
  Age: 49 Year
  Sex: Male
  Weight: 147 kg

DRUGS (16)
  1. LYRICA [Suspect]
     Indication: DIABETIC NEUROPATHY
     Dosage: UNK
  2. LYRICA [Suspect]
     Dosage: 100 mg, 2x/day
  3. LYRICA [Suspect]
     Dosage: 100 mg, 3x/day
     Route: 048
  4. ACETYLSALICYLIC ACID [Concomitant]
     Indication: CARDIAC DISORDER
     Dosage: UNK
  5. METFORMIN [Concomitant]
     Dosage: UNK
  6. NIASPAN [Concomitant]
     Dosage: UNK
  7. POTASSIUM [Concomitant]
     Dosage: UNK
  8. VYTORIN [Concomitant]
     Dosage: UNK
  9. METOPROLOL [Concomitant]
     Dosage: UNK
  10. LISINOPRIL [Concomitant]
     Dosage: UNK
  11. EFFIENT [Concomitant]
     Indication: CARDIAC DISORDER
     Dosage: UNK
  12. HYDROCODONE W/ACETAMINOPHEN [Concomitant]
     Dosage: UNK
  13. AMBIEN [Concomitant]
     Dosage: UNK
  14. NOVOLOG [Concomitant]
     Dosage: UNK
  15. HUMALOG [Concomitant]
     Dosage: UNK
  16. ISOSORBIDE MONONITRATE [Concomitant]
     Dosage: UNK

REACTIONS (2)
  - Drug ineffective [Unknown]
  - Incorrect dose administered [Unknown]
